FAERS Safety Report 6129204-7 (Version None)
Quarter: 2009Q1

REPORT INFORMATION
  Report Type: 
  Country: None (occurrence: None)
  Receive Date: 20090324
  Receipt Date: 20090313
  Transmission Date: 20090719
  Serious: Yes (Other)
  Sender: FDA-Public Use
  Company Number: PHHY2009GB09919

PATIENT
  Sex: Male

DRUGS (1)
  1. CLOZARIL [Suspect]
     Dosage: 300 MG, ONCE/SINGLE
     Route: 048

REACTIONS (7)
  - INCOHERENT [None]
  - PYREXIA [None]
  - SALIVARY HYPERSECRETION [None]
  - SEDATION [None]
  - TACHYCARDIA [None]
  - WRIST FRACTURE [None]
  - WRIST SURGERY [None]
